FAERS Safety Report 6786775-5 (Version None)
Quarter: 2010Q2

REPORT INFORMATION
  Report Type: 
  Country: None (occurrence: None)
  Receive Date: 20100623
  Receipt Date: 20100616
  Transmission Date: 20101027
  Serious: Yes (Hospitalization)
  Sender: FDA-Public Use
  Company Number: US-ASTRAZENECA-2010SE28113

PATIENT
  Age: 54 Year
  Sex: Male

DRUGS (7)
  1. CRESTOR [Suspect]
     Route: 048
     Dates: start: 20080101
  2. PLAVIX [Concomitant]
  3. ASPIRIN [Concomitant]
  4. SINGULAIR [Concomitant]
  5. FISH OIL [Concomitant]
  6. MAGNESIUM OXIDE [Concomitant]
  7. VITAMIN D [Concomitant]

REACTIONS (1)
  - VASCULAR OCCLUSION [None]
